FAERS Safety Report 7754723-7 (Version None)
Quarter: 2011Q3

REPORT INFORMATION
  Report Type: 
  Country: None (occurrence: None)
  Receive Date: 20110915
  Receipt Date: 20110907
  Transmission Date: 20111222
  Serious: Yes (Other)
  Sender: FDA-Public Use
  Company Number: AU-BRISTOL-MYERS SQUIBB COMPANY-15918436

PATIENT
  Age: 71 Year
  Sex: Male

DRUGS (17)
  1. TEMAZEPAM [Concomitant]
     Dates: start: 20110108
  2. GLUCOSAMINE [Concomitant]
     Dates: start: 20020101
  3. MONOPRIL [Concomitant]
     Dates: start: 20000101
  4. ACETAMINOPHEN [Concomitant]
     Dates: start: 20110102
  5. FISH OIL [Concomitant]
     Dates: start: 20020201
  6. DASATINIB [Suspect]
     Indication: PROSTATE CANCER
     Route: 048
     Dates: start: 20101220, end: 20110729
  7. ZOLADEX [Concomitant]
     Dates: start: 20100201
  8. LYCOPENE [Concomitant]
     Dates: start: 20100201
  9. PROPOXYPHENE HCL AND ACETAMINOPHEN [Concomitant]
     Dates: start: 20110103
  10. VITAMIN D [Concomitant]
     Dates: start: 20100201
  11. BLINDED: PLACEBO [Suspect]
     Indication: PROSTATE CANCER
     Route: 048
     Dates: start: 20101220, end: 20110729
  12. DOCETAXEL [Suspect]
     Indication: PROSTATE CANCER
     Dosage: NO OF COURSES: 6
     Route: 042
     Dates: start: 20101220, end: 20110407
  13. PREDNISONE [Suspect]
     Indication: PROSTATE CANCER
     Route: 048
     Dates: start: 20101220
  14. CARTIA XT [Concomitant]
     Dates: start: 20000101
  15. DOXYLAMINE SUCCINATE [Concomitant]
     Dates: start: 20101219
  16. COLOXYL + SENNA [Concomitant]
     Dates: start: 20101230
  17. ATORVASTATIN [Concomitant]
     Dates: start: 20000101

REACTIONS (1)
  - SQUAMOUS CELL CARCINOMA OF SKIN [None]
